FAERS Safety Report 17298514 (Version 3)
Quarter: 2022Q3

REPORT INFORMATION
  Report Type: Report from Study
  Country: US (occurrence: US)
  Receive Date: 20200122
  Receipt Date: 20220928
  Transmission Date: 20221027
  Serious: Yes (Hospitalization)
  Sender: FDA-Public Use
  Company Number: US-SHIRE-US202001729

PATIENT
  Age: 43 Year
  Sex: Male

DRUGS (8)
  1. HUMAN C1-ESTERASE INHIBITOR [Suspect]
     Active Substance: HUMAN C1-ESTERASE INHIBITOR
     Indication: Immune system disorder
     Dosage: 2500 INTERNATIONAL UNIT
     Route: 065
     Dates: start: 20090122
  2. HUMAN C1-ESTERASE INHIBITOR [Suspect]
     Active Substance: HUMAN C1-ESTERASE INHIBITOR
     Indication: Immune system disorder
     Dosage: 2500 INTERNATIONAL UNIT
     Route: 065
     Dates: start: 20090122
  3. HUMAN C1-ESTERASE INHIBITOR [Suspect]
     Active Substance: HUMAN C1-ESTERASE INHIBITOR
     Indication: Immune system disorder
     Dosage: 2500 INTERNATIONAL UNIT
     Route: 065
     Dates: start: 20090122
  4. HUMAN C1-ESTERASE INHIBITOR [Suspect]
     Active Substance: HUMAN C1-ESTERASE INHIBITOR
     Dosage: 2500 INTERNATIONAL UNIT
     Route: 058
     Dates: start: 20090122
  5. HUMAN C1-ESTERASE INHIBITOR [Suspect]
     Active Substance: HUMAN C1-ESTERASE INHIBITOR
     Dosage: 2500 INTERNATIONAL UNIT
     Route: 058
     Dates: start: 20090122
  6. HUMAN C1-ESTERASE INHIBITOR [Suspect]
     Active Substance: HUMAN C1-ESTERASE INHIBITOR
     Dosage: 2500 INTERNATIONAL UNIT
     Route: 058
     Dates: start: 20090122
  7. FIRAZYR [Suspect]
     Active Substance: ICATIBANT ACETATE
     Indication: Product used for unknown indication
     Dosage: 30 MILLILITER
     Route: 065
     Dates: start: 20180425
  8. FIRAZYR [Suspect]
     Active Substance: ICATIBANT ACETATE
     Indication: Product used for unknown indication
     Dosage: 30 MILLILITER
     Route: 065
     Dates: start: 20180425

REACTIONS (4)
  - Hereditary angioedema [Recovered/Resolved]
  - Poor venous access [Recovered/Resolved]
  - Prescribed overdose [Unknown]
  - Inappropriate schedule of product administration [Unknown]

NARRATIVE: CASE EVENT DATE: 20200110
